FAERS Safety Report 22369187 (Version 1)
Quarter: 2023Q2

REPORT INFORMATION
  Report Type: Spontaneous
  Country: JP (occurrence: JP)
  Receive Date: 20230525
  Receipt Date: 20230525
  Transmission Date: 20230722
  Serious: Yes (Other)
  Sender: FDA-Public Use
  Company Number: JP-BRISTOL-MYERS SQUIBB COMPANY-2023-073587

PATIENT
  Age: 77 Year
  Sex: Female

DRUGS (6)
  1. NIVOLUMAB [Suspect]
     Active Substance: NIVOLUMAB
     Indication: Adenocarcinoma
  2. IPILIMUMAB [Suspect]
     Active Substance: IPILIMUMAB
     Indication: Adenocarcinoma
  3. CARBOPLATIN [Suspect]
     Active Substance: CARBOPLATIN
     Indication: Adenocarcinoma
     Dosage: AUC 5
  4. PEMETREXED [Suspect]
     Active Substance: PEMETREXED
     Indication: Adenocarcinoma
  5. PEMETREXED [Suspect]
     Active Substance: PEMETREXED
     Indication: Plasma cell myeloma
  6. PEMETREXED [Suspect]
     Active Substance: PEMETREXED
     Indication: Acute lymphocytic leukaemia

REACTIONS (1)
  - Pulmonary toxicity [Unknown]
